FAERS Safety Report 10504254 (Version 2)
Quarter: 2014Q4

REPORT INFORMATION
  Report Type: Report from Study
  Country: RU (occurrence: RU)
  Receive Date: 20141008
  Receipt Date: 20141119
  Transmission Date: 20150528
  Serious: Yes (Hospitalization)
  Sender: FDA-Public Use
  Company Number: RU-JNJFOC-20140924298

PATIENT
  Age: 73 Year
  Sex: Male
  Weight: 74 kg

DRUGS (5)
  1. BUSERELIN [Concomitant]
     Active Substance: BUSERELIN
     Indication: PROSTATE CANCER
     Route: 058
     Dates: start: 20140123
  2. ABIRATERONE ACETATE [Suspect]
     Active Substance: ABIRATERONE ACETATE
     Indication: PROSTATE CANCER
     Route: 048
     Dates: start: 20140319, end: 20140925
  3. ABIRATERONE ACETATE [Suspect]
     Active Substance: ABIRATERONE ACETATE
     Route: 048
  4. PREDNISONE. [Suspect]
     Active Substance: PREDNISONE
     Indication: PROSTATE CANCER
     Route: 048
     Dates: start: 20140319, end: 20140925
  5. DETRALEX [Concomitant]
     Active Substance: DIOSMIN\HESPERIDIN
     Indication: VARICOSE VEIN
     Route: 048
     Dates: start: 20140402

REACTIONS (1)
  - Venous thrombosis limb [Recovered/Resolved]

NARRATIVE: CASE EVENT DATE: 20140924
